FAERS Safety Report 20958490 (Version 1)
Quarter: 2022Q2

REPORT INFORMATION
  Report Type: Spontaneous
  Country: CZ (occurrence: CZ)
  Receive Date: 20220614
  Receipt Date: 20220614
  Transmission Date: 20220720
  Serious: Yes (Life-Threatening, Other)
  Sender: FDA-Public Use
  Company Number: CZ-002147023-NVSC2022CZ128839

PATIENT
  Age: 59 Year
  Sex: Female

DRUGS (3)
  1. IMATINIB [Suspect]
     Active Substance: IMATINIB
     Indication: Chronic myeloid leukaemia
     Dosage: 500 MILLIGRAM, QD
     Dates: start: 20180205
  2. IMATINIB [Suspect]
     Active Substance: IMATINIB
     Dosage: 400 MILLIGRAM, QD
     Dates: start: 20170717, end: 20170830
  3. IMATINIB [Suspect]
     Active Substance: IMATINIB
     Dosage: 300 MILLIGRAM, QD
     Dates: start: 20170911

REACTIONS (7)
  - Hepatic enzyme increased [Unknown]
  - Treatment failure [Unknown]
  - Dyspnoea [Unknown]
  - Cardiac failure [Unknown]
  - Swelling face [Unknown]
  - Peripheral swelling [Unknown]
  - Fluid retention [Unknown]
